FAERS Safety Report 17933118 (Version 2)
Quarter: 2020Q3

REPORT INFORMATION
  Report Type: Spontaneous
  Country: US (occurrence: US)
  Receive Date: 20200623
  Receipt Date: 20200709
  Transmission Date: 20201103
  Serious: Yes (Hospitalization)
  Sender: FDA-Public Use
  Company Number: US-TEVA-2020-US-1790325

PATIENT
  Age: 22 Year
  Sex: Female

DRUGS (3)
  1. LEVETIRACETAM. [Suspect]
     Active Substance: LEVETIRACETAM
     Indication: POST-ANOXIC MYOCLONUS
     Dosage: 4 GRAM DAILY; INITIAL DOSAGE NOT STATED; HOWEVER, FOLLOWING THE DIAGNOSIS OF SEVERE CHRONIC POST?HYP
     Route: 065
  2. CLONAZEPAM. [Concomitant]
     Active Substance: CLONAZEPAM
     Indication: POST-ANOXIC MYOCLONUS
     Dosage: 10 MILLIGRAM DAILY; INITIAL DOSAGE NOT STATED; HOWEVER, FOLLOWING THE DIAGNOSIS OF SEVERE CHRONIC PO
     Route: 065
  3. DIVALPROEX SODIUM. [Concomitant]
     Active Substance: DIVALPROEX SODIUM
     Indication: POST-ANOXIC MYOCLONUS
     Dosage: 3 GRAM DAILY; INITIAL DOSAGE NOT STATED; HOWEVER, FOLLOWING THE DIAGNOSIS OF SEVERE CHRONIC POST?HYP
     Route: 065

REACTIONS (2)
  - Rebound effect [Recovering/Resolving]
  - Post-anoxic myoclonus [Recovering/Resolving]
